FAERS Safety Report 19292039 (Version 2)
Quarter: 2021Q2

REPORT INFORMATION
  Report Type: Other
  Country: JP (occurrence: JP)
  Receive Date: 20210524
  Receipt Date: 20210603
  Transmission Date: 20210717
  Serious: Yes (Hospitalization, Other)
  Sender: FDA-Public Use
  Company Number: JP-ROCHE-2832461

PATIENT
  Age: 67 Year

DRUGS (18)
  1. ATEZOLIZUMAB. [Suspect]
     Active Substance: ATEZOLIZUMAB
     Dosage: 1200 MILLIGRAM, ONCE/3WEEKS
     Route: 041
     Dates: start: 20210329
  2. PACLITAXEL. [Suspect]
     Active Substance: PACLITAXEL
     Indication: NON-SMALL CELL LUNG CANCER
     Dosage: 152 MILLIGRAM, ONCE/3WEEKS
     Route: 041
     Dates: start: 20201204, end: 20201225
  3. ATEZOLIZUMAB. [Suspect]
     Active Substance: ATEZOLIZUMAB
     Indication: NON-SMALL CELL LUNG CANCER
     Dosage: 1200 MILLIGRAM, ONCE/3WEEKS
     Route: 041
     Dates: start: 20201204, end: 20201225
  4. BEVACIZUMAB. [Suspect]
     Active Substance: BEVACIZUMAB
     Indication: NON-SMALL CELL LUNG CANCER
     Dosage: 637 MILLIGRAM, ONCE/3WEEKS
     Route: 041
     Dates: start: 20201204, end: 20201225
  5. BEVACIZUMAB. [Suspect]
     Active Substance: BEVACIZUMAB
     Dosage: 637 MILLIGRAM, ONCE/3WEEKS
     Route: 041
     Dates: start: 20210329, end: 20210508
  6. CARBOPLATIN. [Suspect]
     Active Substance: CARBOPLATIN
     Indication: NON-SMALL CELL LUNG CANCER
     Dosage: 351 MILLIGRAM, ONCE/3WEEKS
     Route: 041
     Dates: start: 20201204, end: 20201225
  7. CARBOPLATIN. [Suspect]
     Active Substance: CARBOPLATIN
     Dosage: 351 MILLIGRAM, ONCE/3WEEKS
     Route: 041
     Dates: start: 20210329, end: 20210508
  8. PRANLUKAST [Concomitant]
     Active Substance: PRANLUKAST
     Indication: ASTHMA
     Dosage: UNK
     Route: 065
  9. APREPITANT. [Concomitant]
     Active Substance: APREPITANT
     Indication: ASTHMA
     Dosage: UNK
     Route: 065
     Dates: start: 20210421, end: 20210423
  10. PACLITAXEL. [Suspect]
     Active Substance: PACLITAXEL
     Dosage: 152 MILLIGRAM, ONCE/3WEEKS
     Route: 041
     Dates: start: 20210329, end: 20210508
  11. MYSLEE [Concomitant]
     Active Substance: ZOLPIDEM TARTRATE
     Indication: ASTHMA
     Dosage: 5 MILLIGRAM, QD
     Route: 065
  12. ATEZOLIZUMAB. [Suspect]
     Active Substance: ATEZOLIZUMAB
     Dosage: 152 MILLIGRAM, ONCE/3WEEKS
     Route: 041
     Dates: start: 20210329, end: 20210508
  13. EPINASTINE. [Concomitant]
     Active Substance: EPINASTINE HYDROCHLORIDE
     Indication: ASTHMA
     Dosage: UNK
     Route: 065
  14. ATEZOLIZUMAB. [Suspect]
     Active Substance: ATEZOLIZUMAB
     Dosage: 152 MILLIGRAM, ONCE/3WEEKS
     Route: 041
     Dates: start: 20201204, end: 20201225
  15. ATEZOLIZUMAB. [Suspect]
     Active Substance: ATEZOLIZUMAB
     Dosage: 351 MILLIGRAM, ONCE/3WEEKS
     Route: 041
     Dates: start: 20210329, end: 20210421
  16. PRANLUKAST [Concomitant]
     Active Substance: PRANLUKAST
     Indication: PROPHYLAXIS
     Dosage: UNK
     Route: 065
     Dates: start: 20210421, end: 20210423
  17. ATEZOLIZUMAB. [Suspect]
     Active Substance: ATEZOLIZUMAB
     Dosage: 351 MILLIGRAM, ONCE/3WEEKS
     Route: 041
     Dates: start: 20201204, end: 20201225
  18. PRANLUKAST [Concomitant]
     Active Substance: PRANLUKAST
     Indication: ASTHMA
     Dosage: 450 MILLIGRAM, QD
     Route: 065

REACTIONS (2)
  - Pulmonary haemorrhage [Recovering/Resolving]
  - Oesophageal stenosis [Unknown]

NARRATIVE: CASE EVENT DATE: 20210504
